FAERS Safety Report 4838127-2 (Version None)
Quarter: 2005Q4

REPORT INFORMATION
  Report Type: 
  Country: None (occurrence: None)
  Receive Date: 20051128
  Receipt Date: 20051115
  Transmission Date: 20060501
  Serious: Yes (Other)
  Sender: FDA-Public Use
  Company Number: PHBS2005FR16975

PATIENT
  Age: 45 Year
  Sex: Male

DRUGS (4)
  1. VOLTAREN [Suspect]
     Dosage: 100 MG/DAY
  2. ESOMEPRAZOLE [Suspect]
     Dosage: 20 MG/DAY
  3. TRANXENE [Suspect]
     Dosage: 50 MG/DAY
  4. METHADONE [Suspect]
     Dosage: 60 MG/DAY

REACTIONS (5)
  - DISTURBANCE IN ATTENTION [None]
  - DIZZINESS [None]
  - DRUG INTERACTION [None]
  - FEELING DRUNK [None]
  - OVERDOSE [None]
